FAERS Safety Report 11101551 (Version 2)
Quarter: 2015Q3

REPORT INFORMATION
  Report Type: Spontaneous
  Country: US (occurrence: US)
  Receive Date: 20150508
  Receipt Date: 20150818
  Transmission Date: 20151125
  Serious: Yes (Death, Hospitalization, Other)
  Sender: FDA-Public Use
  Company Number: US-GLAXOSMITHKLINE-US2015GSK061804

PATIENT
  Age: 57 Year
  Sex: Male
  Weight: 73.16 kg

DRUGS (11)
  1. PALBOCICLIB [Suspect]
     Active Substance: PALBOCICLIB
     Indication: SQUAMOUS CELL CARCINOMA OF LUNG
     Dosage: 125 MG, QD ON DAYS 1-21 (CYCLE 28 DAYS)
     Route: 048
     Dates: start: 20150113, end: 20150113
  2. ZOFRAN [Suspect]
     Active Substance: ONDANSETRON HYDROCHLORIDE
     Dosage: UNK
     Route: 048
     Dates: end: 20150105
  3. ZOFRAN [Suspect]
     Active Substance: ONDANSETRON HYDROCHLORIDE
     Dosage: 4 MG EVERY 6 HOURS AS NEEDED
     Dates: start: 20150116
  4. NORCO [Suspect]
     Active Substance: ACETAMINOPHEN\HYDROCODONE BITARTRATE
     Dosage: 7.5-325 MG Q4H PRN
     Route: 048
  5. ATIVAN [Concomitant]
     Active Substance: LORAZEPAM
  6. COMPAZINE [Concomitant]
     Active Substance: PROCHLORPERAZINE MALEATE
  7. ZOFRAN [Suspect]
     Active Substance: ONDANSETRON HYDROCHLORIDE
     Dosage: 4 MG Q8H, PRN
  8. PALBOCICLIB [Suspect]
     Active Substance: PALBOCICLIB
     Dosage: UNK
     Dates: end: 20150123
  9. OXYCONTIN [Suspect]
     Active Substance: OXYCODONE HYDROCHLORIDE
     Indication: PAIN MANAGEMENT
     Dosage: UNK
     Dates: start: 201408
  10. NORCO [Suspect]
     Active Substance: ACETAMINOPHEN\HYDROCODONE BITARTRATE
     Dosage: 7.5 MG, PRN
     Route: 048
     Dates: start: 201408
  11. MEGACE [Concomitant]
     Active Substance: MEGESTROL ACETATE

REACTIONS (13)
  - Sudden death [Fatal]
  - Liver disorder [Fatal]
  - Coma [Unknown]
  - Vomiting [Unknown]
  - Constipation [Unknown]
  - Leukocytosis [Recovered/Resolved]
  - Dyspepsia [Unknown]
  - Hypoalbuminaemia [Recovered/Resolved]
  - Squamous cell carcinoma of lung [Fatal]
  - Flatulence [Unknown]
  - Nausea [Not Recovered/Not Resolved]
  - Platelet count decreased [Recovered/Resolved]
  - Diarrhoea [Unknown]

NARRATIVE: CASE EVENT DATE: 20150113
